FAERS Safety Report 6742403-6 (Version None)
Quarter: 2010Q2

REPORT INFORMATION
  Report Type: 
  Country: None (occurrence: None)
  Receive Date: 20100526
  Receipt Date: 20100513
  Transmission Date: 20101027
  Serious: Yes (Hospitalization, Other)
  Sender: FDA-Public Use
  Company Number: PHHY2010DE31981

PATIENT
  Sex: Female
  Weight: 121 kg

DRUGS (12)
  1. ALISKIREN ALI+ [Suspect]
     Indication: HYPERTENSION
     Dosage: 300 MG, QD
     Dates: start: 20090430
  2. EXFORGE [Suspect]
     Indication: HYPERTENSION
     Dosage: 5 MG ^ UNK MG/D
     Dates: start: 20090122
  3. SIMVASTATIN [Suspect]
     Indication: HYPERCHOLESTEROLAEMIA
     Dosage: 20 MG, QD
     Dates: start: 20051205
  4. EBRANTIL [Suspect]
     Indication: HYPERTENSION
     Dosage: 180 MG, QD
     Dates: start: 20051205
  5. FUROSEMIDE [Suspect]
     Indication: CARDIAC FAILURE
     Dosage: 40 MG, QD
     Dates: start: 19931118
  6. TORASEMIDE [Suspect]
     Indication: CARDIAC FAILURE
     Dosage: 15 MG, QD
     Dates: start: 19931118
  7. ASPIRIN [Suspect]
     Indication: CORONARY ARTERY DISEASE
     Dosage: 100 MG, QD
     Dates: start: 19931118
  8. BISOPROLOL [Suspect]
     Indication: HYPERTENSION
     Dosage: 5 MG, QD
     Dates: start: 19931118
  9. DIGITOXIN [Suspect]
     Indication: CARDIAC FAILURE
     Dosage: 0.07 MG, QD
     Dates: start: 20090724
  10. ANTIHYPERTENSIVES [Concomitant]
  11. NITRATES [Concomitant]
  12. ANTIDEPRESSANTS [Concomitant]

REACTIONS (13)
  - ANGINA PECTORIS [None]
  - ANGIOGRAM [None]
  - BLOOD GLUCOSE INCREASED [None]
  - BLOOD TRIGLYCERIDES INCREASED [None]
  - C-REACTIVE PROTEIN INCREASED [None]
  - CARDIAC FAILURE [None]
  - CONDITION AGGRAVATED [None]
  - DEPRESSION [None]
  - DYSPNOEA [None]
  - GLYCOSYLATED HAEMOGLOBIN INCREASED [None]
  - HYPERTENSIVE CRISIS [None]
  - LEFT VENTRICULAR HYPERTROPHY [None]
  - TYPE 2 DIABETES MELLITUS [None]
